FAERS Safety Report 24214399 (Version 2)
Quarter: 2024Q3

REPORT INFORMATION
  Report Type: Spontaneous
  Country: IT (occurrence: IT)
  Receive Date: 20240815
  Receipt Date: 20240904
  Transmission Date: 20241017
  Serious: Yes (Life-Threatening, Hospitalization)
  Sender: TEVA
  Company Number: IT-TEVA-VS-3231950

PATIENT
  Age: 2 Year
  Sex: Male

DRUGS (17)
  1. BETAMETHASONE [Suspect]
     Active Substance: BETAMETHASONE\BETAMETHASONE DIPROPIONATE
     Indication: Anaphylaxis prophylaxis
     Route: 065
  2. BETAMETHASONE [Suspect]
     Active Substance: BETAMETHASONE\BETAMETHASONE DIPROPIONATE
     Indication: Anaphylaxis prophylaxis
     Route: 048
  3. OLIPUDASE ALFA [Suspect]
     Active Substance: OLIPUDASE ALFA
     Indication: Niemann-Pick disease
     Route: 065
  4. OLIPUDASE ALFA [Suspect]
     Active Substance: OLIPUDASE ALFA
     Indication: Niemann-Pick disease
     Route: 065
  5. OLIPUDASE ALFA [Suspect]
     Active Substance: OLIPUDASE ALFA
     Indication: Niemann-Pick disease
     Route: 065
  6. OLIPUDASE ALFA [Suspect]
     Active Substance: OLIPUDASE ALFA
     Indication: Niemann-Pick disease
     Route: 065
  7. OLIPUDASE ALFA [Suspect]
     Active Substance: OLIPUDASE ALFA
     Indication: Niemann-Pick disease
     Route: 065
  8. OLIPUDASE ALFA [Suspect]
     Active Substance: OLIPUDASE ALFA
     Indication: Niemann-Pick disease
     Route: 065
  9. OLIPUDASE ALFA [Suspect]
     Active Substance: OLIPUDASE ALFA
     Indication: Niemann-Pick disease
     Route: 065
  10. ALBUTEROL [Suspect]
     Active Substance: ALBUTEROL
     Indication: Anaphylactic reaction
     Route: 055
  11. METHYLPREDNISOLONE [Suspect]
     Active Substance: METHYLPREDNISOLONE
     Indication: Anaphylaxis prophylaxis
     Route: 065
  12. METHYLPREDNISOLONE [Suspect]
     Active Substance: METHYLPREDNISOLONE
     Indication: Anaphylaxis prophylaxis
     Route: 042
  13. HYDROCORTISONE [Concomitant]
     Active Substance: HYDROCORTISONE\HYDROCORTISONE ACETATE
     Indication: Anaphylactic reaction
     Route: 042
  14. CETIRIZINE [Suspect]
     Active Substance: CETIRIZINE HYDROCHLORIDE
     Indication: Anaphylactic reaction
     Route: 048
  15. EPINEPHRINE [Concomitant]
     Active Substance: EPINEPHRINE
     Indication: Anaphylactic reaction
     Route: 030
  16. ACETAMINOPHEN [Suspect]
     Active Substance: ACETAMINOPHEN
     Indication: Anaphylaxis prophylaxis
     Route: 048
  17. PREDNISONE [Suspect]
     Active Substance: PREDNISONE
     Indication: Anaphylactic reaction
     Route: 048

REACTIONS (2)
  - Anaphylactic reaction [Recovered/Resolved]
  - Drug ineffective [Unknown]
